FAERS Safety Report 6072057-6 (Version None)
Quarter: 2009Q1

REPORT INFORMATION
  Report Type: 
  Country: None (occurrence: None)
  Receive Date: 20090205
  Receipt Date: 20090205
  Transmission Date: 20090719
  Serious: Yes (Hospitalization, Other)
  Sender: FDA-Public Use
  Company Number: None

PATIENT
  Sex: Female

DRUGS (2)
  1. COMPAZINE [Suspect]
     Indication: DIARRHOEA
     Dosage: 1 TAB 3 TIMES DAILY PRN PO
     Route: 048
     Dates: start: 20090130, end: 20090202
  2. COMPAZINE [Suspect]
     Indication: NAUSEA
     Dosage: 1 TAB 3 TIMES DAILY PRN PO
     Route: 048
     Dates: start: 20090130, end: 20090202

REACTIONS (8)
  - BRUXISM [None]
  - DROOLING [None]
  - DYSPHONIA [None]
  - DYSPNOEA [None]
  - EUPHORIC MOOD [None]
  - HYPERTENSION [None]
  - HYPOAESTHESIA FACIAL [None]
  - NECK PAIN [None]
